FAERS Safety Report 8613591-1 (Version None)
Quarter: 2012Q3

REPORT INFORMATION
  Report Type: 
  Country: None (occurrence: None)
  Receive Date: 20120823
  Receipt Date: 20120808
  Transmission Date: 20120928
  Serious: Yes (Other)
  Sender: FDA-Public Use
  Company Number: GB-009507513-1208GBR004734

PATIENT

DRUGS (11)
  1. BENDROFLUMETHIAZIDE [Concomitant]
     Dosage: UNK
     Dates: start: 20120503, end: 20120627
  2. MOVIPREP [Concomitant]
     Dosage: UNK
     Dates: start: 20120510, end: 20120607
  3. ASPIRIN [Concomitant]
     Dosage: UNK
     Dates: start: 20120403, end: 20120705
  4. HYPROMELLOSE [Concomitant]
     Dosage: UNK
     Dates: start: 20120410, end: 20120725
  5. BECONASE [Concomitant]
     Dosage: UNK
     Dates: start: 20120503, end: 20120531
  6. BECONASE [Concomitant]
     Dosage: UNK
     Dates: start: 20120627, end: 20120725
  7. IBUPROFEN [Concomitant]
     Dosage: UNK
     Dates: start: 20120627, end: 20120707
  8. VAGIFEM [Concomitant]
     Dosage: UNK
     Dates: start: 20120410, end: 20120607
  9. OMACOR [Concomitant]
     Dosage: UNK
     Dates: start: 20120307, end: 20120529
  10. EZETIMIBE [Suspect]
  11. METFORMIN [Concomitant]
     Dosage: UNK
     Dates: start: 20120403

REACTIONS (1)
  - SOMNOLENCE [None]
